FAERS Safety Report 5340204-7 (Version None)
Quarter: 2007Q2

REPORT INFORMATION
  Report Type: 
  Country: None (occurrence: None)
  Receive Date: 20070531
  Receipt Date: 20070523
  Transmission Date: 20071010
  Serious: Yes (Disabling)
  Sender: FDA-Public Use
  Company Number: D0053383A

PATIENT
  Age: 52 Year
  Sex: Male
  Weight: 94.6 kg

DRUGS (4)
  1. AVANDAMET [Suspect]
     Dosage: 1004MG TWICE PER DAY
     Route: 048
     Dates: start: 20050401
  2. ACTOS [Concomitant]
     Dosage: 30MG PER DAY
     Route: 048
     Dates: start: 20010829, end: 20050401
  3. RAMIPRIL [Concomitant]
     Indication: HYPERTENSION
     Dosage: 5MG TWICE PER DAY
     Route: 048
     Dates: start: 20050823
  4. SIMVASTATIN [Concomitant]
     Dosage: 80MG PER DAY
     Route: 048
     Dates: start: 20050901

REACTIONS (6)
  - BONE MARROW OEDEMA SYNDROME [None]
  - FEELING HOT [None]
  - GAIT DISTURBANCE [None]
  - METATARSALGIA [None]
  - NEUROPATHIC ARTHROPATHY [None]
  - OEDEMA PERIPHERAL [None]
